FAERS Safety Report 24593382 (Version 1)
Quarter: 2024Q4

REPORT INFORMATION
  Report Type: Spontaneous
  Country: US (occurrence: None)
  Receive Date: 20241107
  Receipt Date: 20241107
  Transmission Date: 20250115
  Serious: Yes (Death)
  Sender: Public
  Company Number: None

PATIENT
  Age: 77 Year
  Sex: Female

DRUGS (1)
  1. TADALAFIL [Suspect]
     Active Substance: TADALAFIL
     Indication: Pulmonary hypertension
     Dosage: FREQUENCY : DAILY;?
     Route: 048
     Dates: start: 20230213, end: 20241025

REACTIONS (8)
  - Septic shock [None]
  - Abdominal infection [None]
  - Cellulitis [None]
  - Lower gastrointestinal haemorrhage [None]
  - Cardiac failure acute [None]
  - Right ventricular failure [None]
  - Encephalopathy [None]
  - Renal impairment [None]

NARRATIVE: CASE EVENT DATE: 20241025
